FAERS Safety Report 19815658 (Version 1)
Quarter: 2021Q3

REPORT INFORMATION
  Report Type: Other
  Country: AU (occurrence: AU)
  Receive Date: 20210910
  Receipt Date: 20210910
  Transmission Date: 20211014
  Serious: Yes (Death)
  Sender: FDA-Public Use
  Company Number: AU-ROCHE-2908670

PATIENT
  Age: 22 Year
  Sex: Male

DRUGS (11)
  1. OXYCODONE [Suspect]
     Active Substance: OXYCODONE
     Indication: PAIN
     Route: 065
     Dates: start: 20190817
  2. CLONAZEPAM. [Suspect]
     Active Substance: CLONAZEPAM
     Indication: PANIC ATTACK
     Route: 065
     Dates: start: 201908
  3. CLONIDINE. [Suspect]
     Active Substance: CLONIDINE
     Indication: PANIC ATTACK
     Route: 065
     Dates: start: 201908
  4. ALPRAZOLAM. [Suspect]
     Active Substance: ALPRAZOLAM
     Indication: PANIC ATTACK
     Route: 065
     Dates: start: 20210817
  5. AGOMELATINE [Suspect]
     Active Substance: AGOMELATINE
     Indication: PANIC ATTACK
     Route: 065
     Dates: start: 201908
  6. PHENOTHIAZINE [Suspect]
     Active Substance: PHENOTHIAZINE
     Indication: PANIC ATTACK
     Route: 065
     Dates: start: 20190810
  7. CODEINE;DOXYLAMINE;PARACETAMOL [Suspect]
     Active Substance: ACETAMINOPHEN\CODEINE\DOXYLAMINE
     Indication: BACK PAIN
     Route: 065
     Dates: start: 201908
  8. QUETIAPINE. [Suspect]
     Active Substance: QUETIAPINE
     Indication: PANIC ATTACK
     Route: 065
     Dates: start: 201908
  9. AMITRIPTYLINE [Suspect]
     Active Substance: AMITRIPTYLINE
     Indication: PANIC ATTACK
     Route: 065
  10. OXYCODONE [Suspect]
     Active Substance: OXYCODONE
     Indication: BACK PAIN
     Route: 065
     Dates: start: 20190815
  11. PREGABALIN. [Suspect]
     Active Substance: PREGABALIN
     Indication: PANIC ATTACK
     Route: 065
     Dates: start: 201908

REACTIONS (2)
  - Death [Fatal]
  - Fall [Unknown]

NARRATIVE: CASE EVENT DATE: 20190818
